FAERS Safety Report 9686058 (Version 2)
Quarter: 2013Q4

REPORT INFORMATION
  Report Type: Spontaneous
  Country: None (occurrence: US)
  Receive Date: 20131113
  Receipt Date: 20131113
  Transmission Date: 20140711
  Serious: No
  Sender: FDA-Public Use
  Company Number: US-ALLERGAN-1217093US

PATIENT
  Age: 68 Year
  Sex: Male

DRUGS (1)
  1. COMBIGAN[R] [Suspect]
     Indication: OPEN ANGLE GLAUCOMA

REACTIONS (2)
  - Reaction to preservatives [Recovered/Resolved]
  - Conjunctivitis [Recovered/Resolved]
